FAERS Safety Report 7772269-7 (Version None)
Quarter: 2011Q3

REPORT INFORMATION
  Report Type: 
  Country: None (occurrence: None)
  Receive Date: 20110922
  Receipt Date: 20100913
  Transmission Date: 20111222
  Serious: Yes (Hospitalization)
  Sender: FDA-Public Use
  Company Number: US-ASTRAZENECA-2010SE43197

PATIENT
  Age: 29 Year
  Sex: Male

DRUGS (3)
  1. ADDERALL 5 [Concomitant]
  2. SEROQUEL XR [Suspect]
     Indication: IMPULSE-CONTROL DISORDER
     Route: 048
     Dates: start: 20100401
  3. SEROQUEL XR [Suspect]
     Indication: BIPOLAR DISORDER
     Route: 048
     Dates: start: 20100401

REACTIONS (1)
  - PRIAPISM [None]
